FAERS Safety Report 6725203 (Version 2)
Quarter: 2013Q1

REPORT INFORMATION
  Report Type: Spontaneous
  Country: FR (occurrence: FR)
  Receive Date: 20080812
  Receipt Date: 20130326
  Transmission Date: 20140127
  Serious: Yes (Hospitalization)
  Sender: FDA-Public Use
  Company Number: FR-PFIZER INC-2008065258

PATIENT
  Age: 73 Year
  Sex: Male

DRUGS (9)
  1. REVATIO [Suspect]
     Indication: PULMONARY ARTERIAL HYPERTENSION
     Dosage: 20 MG, 1X/DAY
     Route: 048
     Dates: start: 20080222, end: 20080520
  2. AMLOR [Suspect]
     Indication: HYPERTENSION
     Dosage: 5 MG, 1X/DAY
     Route: 048
     Dates: end: 20080701
  3. TEMERIT [Suspect]
     Indication: HYPERTENSION
     Dosage: 5 MG, 1X/DAY
     Route: 048
     Dates: start: 20080102, end: 20080701
  4. SPIRIVA [Concomitant]
     Dosage: UNK
  5. SYMBICORT [Concomitant]
     Dosage: UNK
  6. KARDEGIC [Concomitant]
     Dosage: 160 MG, UNK
  7. PREVISCAN [Concomitant]
     Dosage: UNK
  8. BACTRIM [Concomitant]
     Dosage: UNK
  9. TRACLEER [Concomitant]
     Dosage: 62.5 MG, 1X/DAY

REACTIONS (1)
  - Rash [Recovering/Resolving]
